FAERS Safety Report 6888499-2 (Version None)
Quarter: 2010Q3

REPORT INFORMATION
  Report Type: 
  Country: None (occurrence: None)
  Receive Date: 20100730
  Receipt Date: 20100719
  Transmission Date: 20110219
  Serious: Yes (Hospitalization)
  Sender: FDA-Public Use
  Company Number: PHHY2010US47750

PATIENT
  Sex: Female

DRUGS (2)
  1. EXJADE [Suspect]
     Indication: IRON OVERLOAD
     Dosage: 1250 MG, DAILY
     Route: 048
     Dates: start: 20100428
  2. EXJADE [Suspect]
     Indication: THALASSAEMIA SICKLE CELL

REACTIONS (2)
  - ANGIOPATHY [None]
  - VASCULAR OCCLUSION [None]
